FAERS Safety Report 5006443-X (Version None)
Quarter: 2006Q2

REPORT INFORMATION
  Report Type: 
  Country: None (occurrence: None)
  Receive Date: 20060516
  Receipt Date: 20060505
  Transmission Date: 20061013
  Serious: Yes (Death)
  Sender: FDA-Public Use
  Company Number: S06-USA-01730-01

PATIENT
  Age: 48 Year
  Sex: Female

DRUGS (5)
  1. CELEXA [Suspect]
     Indication: MAJOR DEPRESSION
     Dosage: 40 MG QD PO
     Route: 048
     Dates: start: 20060301, end: 20060503
  2. WELLBUTRIN [Suspect]
     Indication: MAJOR DEPRESSION
     Dosage: 150 MG BID PO
     Route: 048
     Dates: start: 20060301, end: 20060503
  3. WELLBUTRIN [Suspect]
     Indication: MAJOR DEPRESSION
     Dosage: 150 MG QD PO
     Route: 048
     Dates: start: 20060227, end: 20060301
  4. KLONOPIN [Suspect]
     Indication: MAJOR DEPRESSION
     Dosage: 1 MG QHS PO
     Route: 048
     Dates: start: 20060301, end: 20060503
  5. TRAZODONE HCL [Suspect]
     Indication: MAJOR DEPRESSION
     Dosage: 100 MG QHS
     Dates: start: 20060301, end: 20060503

REACTIONS (2)
  - COMPLETED SUICIDE [None]
  - TREATMENT NONCOMPLIANCE [None]
